FAERS Safety Report 17970897 (Version 2)
Quarter: 2020Q3

REPORT INFORMATION
  Report Type: Report from Study
  Country: None (occurrence: US)
  Receive Date: 20200702
  Receipt Date: 20200817
  Transmission Date: 20201103
  Serious: No
  Sender: FDA-Public Use
  Company Number: US-BIOVITRUM-2020US2692

PATIENT
  Age: 28 Year
  Sex: Male

DRUGS (1)
  1. KINERET [Suspect]
     Active Substance: ANAKINRA
     Indication: STILL^S DISEASE
     Route: 058
     Dates: start: 20200430

REACTIONS (9)
  - Inflammation [Unknown]
  - Alopecia [Unknown]
  - Contusion [Unknown]
  - Injection site pain [Unknown]
  - Joint swelling [Unknown]
  - Injection site reaction [Unknown]
  - Erythema [Unknown]
  - Off label use [Not Recovered/Not Resolved]
  - Mass [Unknown]

NARRATIVE: CASE EVENT DATE: 20200430
